FAERS Safety Report 24839492 (Version 1)
Quarter: 2025Q1

REPORT INFORMATION
  Report Type: Report from Study
  Country: ES (occurrence: ES)
  Receive Date: 20250114
  Receipt Date: 20250114
  Transmission Date: 20250409
  Serious: Yes (Death)
  Sender: ROCHE
  Company Number: ES-ROCHE-3389134

PATIENT

DRUGS (1)
  1. RITUXIMAB [Suspect]
     Active Substance: RITUXIMAB
     Indication: Autoimmune nodopathy
     Route: 065

REACTIONS (4)
  - Infusion related reaction [Unknown]
  - Disseminated varicella [Fatal]
  - Pneumonia [Unknown]
  - Off label use [Fatal]
